FAERS Safety Report 15095254 (Version 2)
Quarter: 2018Q3

REPORT INFORMATION
  Report Type: Spontaneous
  Country: IT (occurrence: IT)
  Receive Date: 20180702
  Receipt Date: 20180712
  Transmission Date: 20181010
  Serious: Yes (Other)
  Sender: FDA-Public Use
  Company Number: IT-TEVA-2018-IT-879203

PATIENT
  Age: 52 Year
  Sex: Female
  Weight: 148 kg

DRUGS (4)
  1. NAVOBAN [Concomitant]
     Active Substance: TROPISETRON HYDROCHLORIDE
     Route: 065
  2. SOLDESAM [Concomitant]
     Active Substance: DEXAMETHASONE
     Route: 065
  3. CYTARABINE. [Suspect]
     Active Substance: CYTARABINE
     Indication: NON-HODGKIN^S LYMPHOMA
     Route: 042
  4. SODIUM CHLORIDE. [Concomitant]
     Active Substance: SODIUM CHLORIDE
     Route: 065

REACTIONS (2)
  - Administration site extravasation [Recovered/Resolved]
  - Pain [Recovered/Resolved]

NARRATIVE: CASE EVENT DATE: 20180117
